FAERS Safety Report 15715448 (Version 4)
Quarter: 2020Q1

REPORT INFORMATION
  Report Type: Report from Study
  Country: US (occurrence: US)
  Receive Date: 20181212
  Receipt Date: 20200130
  Transmission Date: 20200409
  Serious: Yes (Hospitalization, Other)
  Sender: FDA-Public Use
  Company Number: US-ACTELION-A-US2018-183657

PATIENT
  Sex: Male

DRUGS (2)
  1. ORENITRAM [Concomitant]
     Active Substance: TREPROSTINIL
  2. TRACLEER [Suspect]
     Active Substance: BOSENTAN
     Indication: PULMONARY ARTERIAL HYPERTENSION
     Dosage: 125 MG, BID
     Route: 048
     Dates: start: 20090130

REACTIONS (8)
  - Unevaluable event [Unknown]
  - Dizziness [Unknown]
  - Surgery [Unknown]
  - Coronary artery occlusion [Unknown]
  - Swelling [Unknown]
  - Dyspnoea [Unknown]
  - Chest pain [Unknown]
  - Condition aggravated [Unknown]
